FAERS Safety Report 18556527 (Version 1)
Quarter: 2020Q4

REPORT INFORMATION
  Report Type: Spontaneous
  Country: DE (occurrence: DE)
  Receive Date: 20201128
  Receipt Date: 20201128
  Transmission Date: 20210114
  Serious: Yes (Death, Other)
  Sender: FDA-Public Use
  Company Number: DE-AMGEN-DEUSP2020189495

PATIENT

DRUGS (8)
  1. DALTEPARIN [Concomitant]
     Active Substance: DALTEPARIN
  2. IBANDRONATE [Concomitant]
     Active Substance: IBANDRONATE SODIUM
  3. CYCLOPHOSPHAMIDE. [Concomitant]
     Active Substance: CYCLOPHOSPHAMIDE
     Dosage: 200 MILLIGRAM/SQUARE METRE PER DAYS 1-4
  4. THALIDOMIDE [Concomitant]
     Active Substance: THALIDOMIDE
     Dosage: 100 MILLIGRAM, QD (INCREASED TO 400 MILLIGRAM)
  5. DEXAMETHASONE. [Concomitant]
     Active Substance: DEXAMETHASONE
     Dosage: 40 MILLIGRAM (GIVEN ON DAYS 1-4 AND 15-18)
  6. IDARUBICIN [Concomitant]
     Active Substance: IDARUBICIN
     Dosage: 8-10 MILLIGRAM/SQUARE METRE PER DAYS 1-4
  7. PEGFILGRASTIM [Suspect]
     Active Substance: PEGFILGRASTIM
     Indication: PROPHYLAXIS
     Dosage: UNK
     Route: 065
  8. COTRIMOXAZOL [Concomitant]
     Active Substance: SULFAMETHOXAZOLE\TRIMETHOPRIM

REACTIONS (15)
  - Haematotoxicity [Unknown]
  - Sepsis [Unknown]
  - Nausea [Unknown]
  - Syncope [Unknown]
  - Diarrhoea [Unknown]
  - Pyrexia [Unknown]
  - Haemorrhage [Unknown]
  - Therapy partial responder [Unknown]
  - Pneumonia [Unknown]
  - Pulmonary embolism [Unknown]
  - Mucosal inflammation [Unknown]
  - Circulatory collapse [Unknown]
  - Dehydration [Unknown]
  - Plasma cell myeloma [Fatal]
  - Constipation [Unknown]
